FAERS Safety Report 12681179 (Version 3)
Quarter: 2016Q4

REPORT INFORMATION
  Report Type: Report from Study
  Country: US (occurrence: US)
  Receive Date: 20160824
  Receipt Date: 20161222
  Transmission Date: 20170207
  Serious: Yes (Other)
  Sender: FDA-Public Use
  Company Number: US-SAOL THERAPEUTICS-2016SAO00438

PATIENT
  Age: 66 Year
  Sex: Male
  Weight: 101.13 kg

DRUGS (5)
  1. CLONIDINE. [Suspect]
     Active Substance: CLONIDINE
     Dosage: 526.28 ?G, \DAY
     Route: 037
  2. BUPIVICAINE [Suspect]
     Active Substance: BUPIVACAINE
     Dosage: 11.553 MG, \DAY
     Route: 037
  3. BACLOFEN. [Suspect]
     Active Substance: BACLOFEN
     Indication: SPINAL PAIN
     Dosage: UNK
     Route: 037
  4. CNS-HYDRO [Suspect]
     Active Substance: UNSPECIFIED INGREDIENT
     Dosage: 0.35008 UNK, UNK
     Dates: start: 20160613
  5. SUFENTANIL (ALSO REPORTED AS FENTANYL) [Suspect]
     Active Substance: SUFENTANIL
     Dosage: 675.1 ?G, \DAY
     Route: 037

REACTIONS (5)
  - Off label use [Unknown]
  - Staphylococcus test positive [Recovered/Resolved]
  - Implant site dehiscence [Recovered/Resolved]
  - Implant site infection [Recovered/Resolved]
  - Seroma [Recovered/Resolved]

NARRATIVE: CASE EVENT DATE: 20160607
